FAERS Safety Report 19880222 (Version 1)
Quarter: 2021Q3

REPORT INFORMATION
  Report Type: Spontaneous
  Country: US (occurrence: US)
  Receive Date: 20210925
  Receipt Date: 20210925
  Transmission Date: 20211014
  Serious: No
  Sender: FDA-Public Use
  Company Number: US-SA-2021SA307366

PATIENT
  Sex: Male

DRUGS (2)
  1. SELSUN BLUE NATURALS ITCHY, DRY SCALP [Suspect]
     Active Substance: SALICYLIC ACID
     Dosage: UNK
  2. SELSUN BLUE MEDICATED [Suspect]
     Active Substance: SELENIUM SULFIDE
     Dosage: UNK

REACTIONS (1)
  - Hair colour changes [Unknown]
